FAERS Safety Report 5857435-X (Version None)
Quarter: 2008Q3

REPORT INFORMATION
  Report Type: 
  Country: None (occurrence: None)
  Receive Date: 20080818
  Receipt Date: 20080513
  Transmission Date: 20090109
  Serious: No
  Sender: FDA-Public Use
  Company Number: TPA2008A00422

PATIENT
  Age: 41 Year
  Sex: Male
  Weight: 70.3075 kg

DRUGS (6)
  1. ROZEREM [Suspect]
     Indication: INSOMNIA
     Dosage: 8 MG, QHS, PER ORAL
     Route: 048
     Dates: start: 20080303, end: 20080410
  2. MELATONIN (MELATONIN) (UNKNOWN) [Suspect]
  3. CELEXA [Concomitant]
  4. AZMACORT [Concomitant]
  5. ALBUTEROL [Concomitant]
  6. SINGULAIR [Concomitant]

REACTIONS (4)
  - EXTRASYSTOLES [None]
  - INITIAL INSOMNIA [None]
  - MIDDLE INSOMNIA [None]
  - PALPITATIONS [None]
